FAERS Safety Report 4701267-2 (Version None)
Quarter: 2005Q2

REPORT INFORMATION
  Report Type: 
  Country: None (occurrence: None)
  Receive Date: 20050628
  Receipt Date: 20050415
  Transmission Date: 20051028
  Serious: Yes (Hospitalization, Disabling, Other)
  Sender: FDA-Public Use
  Company Number: US-MERCK-0504USA03344

PATIENT
  Age: 46 Year
  Sex: Male
  Weight: 95 kg

DRUGS (4)
  1. VIOXX [Suspect]
     Indication: BACK PAIN
     Route: 048
     Dates: start: 19990701, end: 20040901
  2. VIOXX [Suspect]
     Route: 048
     Dates: start: 20020901, end: 20030301
  3. VIOXX [Suspect]
     Route: 048
     Dates: start: 20020901, end: 20030301
  4. ASPIRIN [Concomitant]
     Indication: PROPHYLAXIS
     Route: 048
     Dates: start: 20020901, end: 20050318

REACTIONS (5)
  - CEREBROVASCULAR ACCIDENT [None]
  - FIBULA FRACTURE [None]
  - MYOCARDIAL INFARCTION [None]
  - PAIN IN EXTREMITY [None]
  - THROMBOSIS [None]
